FAERS Safety Report 11288770 (Version 2)
Quarter: 2015Q3

REPORT INFORMATION
  Report Type: Other
  Country: US (occurrence: US)
  Receive Date: 20150721
  Receipt Date: 20150813
  Transmission Date: 20151125
  Serious: Yes (Other)
  Sender: FDA-Public Use
  Company Number: US-ACORDA-ACO_113943_2015

PATIENT
  Sex: Male

DRUGS (1)
  1. AMPYRA [Suspect]
     Active Substance: DALFAMPRIDINE
     Indication: MULTIPLE SCLEROSIS
     Dosage: 10 MG, BID
     Route: 065
     Dates: start: 20150710

REACTIONS (27)
  - Dysphagia [Unknown]
  - Musculoskeletal pain [Unknown]
  - Herpes zoster [Unknown]
  - Gait disturbance [Unknown]
  - Thyroid disorder [Unknown]
  - Mastication disorder [Unknown]
  - Neck pain [Unknown]
  - Paraesthesia [Unknown]
  - Systemic lupus erythematosus [Unknown]
  - Memory impairment [Unknown]
  - Tremor [Unknown]
  - Dry eye [Unknown]
  - Headache [Unknown]
  - Vision blurred [Unknown]
  - Aphasia [Unknown]
  - Hypoaesthesia [Unknown]
  - Muscular weakness [Unknown]
  - Musculoskeletal stiffness [Unknown]
  - Dry mouth [Unknown]
  - Balance disorder [Unknown]
  - Fatigue [Unknown]
  - Testis cancer [Unknown]
  - Pollakiuria [Unknown]
  - Sarcoidosis [Unknown]
  - Visual impairment [Unknown]
  - Rheumatoid arthritis [Unknown]
  - Back pain [Unknown]
